FAERS Safety Report 19069972 (Version 30)
Quarter: 2023Q2

REPORT INFORMATION
  Report Type: Spontaneous
  Country: US (occurrence: US)
  Receive Date: 20210329
  Receipt Date: 20230510
  Transmission Date: 20230721
  Serious: Yes (Hospitalization, Other)
  Sender: FDA-Public Use
  Company Number: US-PFIZER INC-2021308628

PATIENT
  Age: 57 Year
  Sex: Female
  Weight: 65.77 kg

DRUGS (24)
  1. PRISTIQ EXTENDED-RELEASE [Suspect]
     Active Substance: DESVENLAFAXINE SUCCINATE
     Indication: Major depression
     Dosage: 25 MG, 1X/DAY
     Route: 048
     Dates: start: 202101
  2. PRISTIQ EXTENDED-RELEASE [Suspect]
     Active Substance: DESVENLAFAXINE SUCCINATE
     Indication: Post-traumatic stress disorder
     Dosage: 25 MG AND 50 MG TAKE ONE OF EACH AT NIGHT AT BEDTIME
     Dates: start: 202101
  3. PRISTIQ EXTENDED-RELEASE [Suspect]
     Active Substance: DESVENLAFAXINE SUCCINATE
     Dosage: 50 MG, 1X/DAY
     Dates: start: 202103
  4. PRISTIQ EXTENDED-RELEASE [Suspect]
     Active Substance: DESVENLAFAXINE SUCCINATE
     Dosage: 75 MG, 1X/DAY; (TAKES A 50MG AND A 25MG)
     Route: 048
  5. PRISTIQ EXTENDED-RELEASE [Suspect]
     Active Substance: DESVENLAFAXINE SUCCINATE
     Dosage: 100 MG; (SHE TAKES TWO 50MG)
  6. PRISTIQ EXTENDED-RELEASE [Suspect]
     Active Substance: DESVENLAFAXINE SUCCINATE
     Dosage: 50 MG, 1X/DAY
     Route: 048
  7. PRISTIQ EXTENDED-RELEASE [Suspect]
     Active Substance: DESVENLAFAXINE SUCCINATE
     Dosage: 25MG ONE TIME A DAY WITH THE 50MG FOR A TOTAL OF 75 MG
  8. PRISTIQ EXTENDED-RELEASE [Suspect]
     Active Substance: DESVENLAFAXINE SUCCINATE
     Dosage: 25 MG, DAILY
     Route: 048
  9. PRISTIQ EXTENDED-RELEASE [Suspect]
     Active Substance: DESVENLAFAXINE SUCCINATE
     Dosage: 50 MG, 1X/DAY
     Route: 048
  10. PRISTIQ EXTENDED-RELEASE [Suspect]
     Active Substance: DESVENLAFAXINE SUCCINATE
     Dosage: UNK
  11. PRISTIQ EXTENDED-RELEASE [Suspect]
     Active Substance: DESVENLAFAXINE SUCCINATE
     Dosage: 50MG AND 25MG, TAKES ONE OF EACH DAILY
  12. PRISTIQ EXTENDED-RELEASE [Suspect]
     Active Substance: DESVENLAFAXINE SUCCINATE
     Dosage: 100 MG, 1X/DAY (TWO OF THE 50MG PER DAY)
     Dates: start: 2023
  13. PRISTIQ EXTENDED-RELEASE [Suspect]
     Active Substance: DESVENLAFAXINE SUCCINATE
     Dosage: UNK
  14. NAPROXEN SODIUM [Suspect]
     Active Substance: NAPROXEN SODIUM
     Dosage: UNK
  15. ACETAMINOPHEN [Suspect]
     Active Substance: ACETAMINOPHEN
     Dosage: UNK
  16. PROZAC [Suspect]
     Active Substance: FLUOXETINE HYDROCHLORIDE
     Dosage: UNK
  17. BENZONATATE [Concomitant]
     Active Substance: BENZONATATE
     Indication: Cough
     Dosage: UNK
  18. CLONAZEPAM [Concomitant]
     Active Substance: CLONAZEPAM
     Dosage: 2 MG, 1X/DAY AT NIGHT
  19. TIZANIDINE [Concomitant]
     Active Substance: TIZANIDINE
     Indication: Bruxism
     Dosage: 2 MG
  20. OXYBUTYNIN [Concomitant]
     Active Substance: OXYBUTYNIN
     Dosage: 10 MG, 2X/DAY
  21. ACYCLOVIR [Concomitant]
     Active Substance: ACYCLOVIR
     Dosage: 400 MG
  22. WELLBUTRIN XL [Concomitant]
     Active Substance: BUPROPION HYDROCHLORIDE
     Dosage: UNK
  23. OMEPRAZOLE [Concomitant]
     Active Substance: OMEPRAZOLE
     Dosage: 40 MG, 1X/DAY
  24. NALTREXONE [Concomitant]
     Active Substance: NALTREXONE
     Dosage: 25 MG, 1X/DAY

REACTIONS (41)
  - Suicidal behaviour [Unknown]
  - Intentional product misuse [Unknown]
  - Product dispensing error [Unknown]
  - Lung lobectomy [Unknown]
  - Drug dependence [Unknown]
  - Suicidal ideation [Unknown]
  - Hip surgery [Unknown]
  - Drug ineffective [Recovered/Resolved]
  - Product prescribing error [Unknown]
  - Cough [Unknown]
  - Tension headache [Not Recovered/Not Resolved]
  - Constipation [Not Recovered/Not Resolved]
  - Fear [Unknown]
  - Emotional distress [Unknown]
  - Crying [Unknown]
  - Anger [Unknown]
  - Personality change [Unknown]
  - Insomnia [Not Recovered/Not Resolved]
  - Binge eating [Unknown]
  - Homicidal ideation [Unknown]
  - Feeling abnormal [Unknown]
  - Nightmare [Unknown]
  - Violence-related symptom [Unknown]
  - Weight increased [Unknown]
  - Fatigue [Unknown]
  - Mania [Unknown]
  - Abnormal behaviour [Unknown]
  - Headache [Unknown]
  - Aggression [Unknown]
  - Weight decreased [Unknown]
  - Withdrawal syndrome [Unknown]
  - Anxiety [Unknown]
  - Impaired driving ability [Recovered/Resolved]
  - Gait disturbance [Unknown]
  - Eating disorder [Unknown]
  - Malaise [Unknown]
  - Feeling abnormal [Unknown]
  - Tachyphrenia [Unknown]
  - Lung disorder [Unknown]
  - Fall [Unknown]
  - Dark circles under eyes [Unknown]

NARRATIVE: CASE EVENT DATE: 20210101
